FAERS Safety Report 25321461 (Version 2)
Quarter: 2025Q3

REPORT INFORMATION
  Report Type: Report from Study
  Country: US (occurrence: US)
  Receive Date: 20250516
  Receipt Date: 20250809
  Transmission Date: 20251020
  Serious: Yes (Hospitalization)
  Sender: ALEXION PHARMACEUTICALS
  Company Number: US-AstraZeneca-CH-00869627A

PATIENT
  Sex: Female

DRUGS (1)
  1. BENRALIZUMAB [Suspect]
     Active Substance: BENRALIZUMAB
     Indication: Asthma
     Dosage: 30 MILLIGRAM, Q4W
     Dates: start: 20231117

REACTIONS (5)
  - Quality of life decreased [Not Recovered/Not Resolved]
  - Asthma [Not Recovered/Not Resolved]
  - Hereditary angioedema [Unknown]
  - Fall [Unknown]
  - Contusion [Unknown]
